FAERS Safety Report 12853220 (Version 1)
Quarter: 2016Q4

REPORT INFORMATION
  Report Type: Spontaneous
  Country: FR (occurrence: FR)
  Receive Date: 20161017
  Receipt Date: 20161017
  Transmission Date: 20170207
  Serious: Yes (Hospitalization, Other)
  Sender: FDA-Public Use
  Company Number: FR-PFIZER INC-2016470610

PATIENT
  Age: 57 Year
  Sex: Female

DRUGS (9)
  1. INEXIUM /01479302/ [Suspect]
     Active Substance: ESOMEPRAZOLE MAGNESIUM
     Dosage: 40 MG, DAILY
     Route: 048
     Dates: start: 201603, end: 20160512
  2. LANSOPRAZOLE. [Concomitant]
     Active Substance: LANSOPRAZOLE
     Dosage: 30 MG, 1X/DAY
  3. MABTHERA [Suspect]
     Active Substance: RITUXIMAB
     Dosage: 1000 MG, 1X/DAY
     Route: 042
     Dates: start: 20160427, end: 20160427
  4. SOLUPRED /00016201/ [Concomitant]
     Active Substance: PREDNISOLONE
     Dosage: 1.5 DF, DAILY
     Dates: end: 20160525
  5. SOLUPRED /00016201/ [Concomitant]
     Active Substance: PREDNISOLONE
     Dosage: 1 DF, DAILY
     Dates: end: 20160602
  6. TAHOR [Suspect]
     Active Substance: ATORVASTATIN CALCIUM
     Dosage: 20 MG, 1X/DAY
     Route: 048
     Dates: end: 20160512
  7. RIVOTRIL [Concomitant]
     Active Substance: CLONAZEPAM
     Dosage: 5 GTT, DAILY
  8. SOLUPRED /00016201/ [Concomitant]
     Active Substance: PREDNISOLONE
     Dosage: 0.5 DF, DAILY
  9. VERSATIS [Concomitant]
     Active Substance: LIDOCAINE
     Dosage: 1 DF, DAILY

REACTIONS (3)
  - Disease recurrence [Unknown]
  - Hepatocellular injury [Recovered/Resolved]
  - Immune thrombocytopenic purpura [Unknown]

NARRATIVE: CASE EVENT DATE: 20160502
